FAERS Safety Report 14272212 (Version 1)
Quarter: 2017Q4

REPORT INFORMATION
  Report Type: Report from Study
  Country: CL (occurrence: CL)
  Receive Date: 20171211
  Receipt Date: 20171211
  Transmission Date: 20180321
  Serious: Yes (Other)
  Sender: FDA-Public Use
  Company Number: CL-TEVA-2017-CL-831326

PATIENT
  Age: 13 Year
  Sex: Female

DRUGS (7)
  1. IMMUNE GLOBULIN [Concomitant]
     Active Substance: HUMAN IMMUNOGLOBULIN G
     Indication: INFECTION PROPHYLAXIS
     Dosage: WEEKLY
     Route: 065
  2. CICLOSPORIN [Suspect]
     Active Substance: CYCLOSPORINE
     Indication: PROPHYLAXIS AGAINST GRAFT VERSUS HOST DISEASE
     Dosage: FROM DAY -1 AT 200-250 NG/ML
     Route: 065
  3. LINEZOLID. [Concomitant]
     Active Substance: LINEZOLID
     Route: 065
  4. BUSULFAN. [Suspect]
     Active Substance: BUSULFAN
     Dosage: 16 MG/KG/TOTAL DOSE ON DAYS -6 TO -3
     Route: 065
  5. CYCLOPHOSPHAMIDE. [Suspect]
     Active Substance: CYCLOPHOSPHAMIDE
     Dosage: 60 MG/KG/DAY ON DAYS -2 AND -1
     Route: 065
  6. ACICLOVIR [Concomitant]
     Active Substance: ACYCLOVIR
     Indication: INFECTION PROPHYLAXIS
     Route: 065
  7. FLUCONAZOLE. [Concomitant]
     Active Substance: FLUCONAZOLE
     Indication: INFECTION PROPHYLAXIS
     Route: 065

REACTIONS (4)
  - Upper respiratory tract infection [Recovered/Resolved]
  - Febrile neutropenia [Unknown]
  - Respiratory syncytial virus infection [Recovered/Resolved]
  - Klebsiella test positive [Unknown]
